FAERS Safety Report 25134287 (Version 1)
Quarter: 2025Q1

REPORT INFORMATION
  Report Type: Spontaneous
  Country: GB (occurrence: GB)
  Receive Date: 20250328
  Receipt Date: 20250328
  Transmission Date: 20250409
  Serious: Yes (Death, Other)
  Sender: RANBAXY
  Company Number: GB-MHRA-TPP10858743C4496552YC1739526754839

PATIENT
  Age: 88 Year
  Sex: Female
  Weight: 79 kg

DRUGS (25)
  1. ATORVASTATIN [Suspect]
     Active Substance: ATORVASTATIN
     Indication: Ill-defined disorder
     Dosage: 80 MILLIGRAM, DAILY
     Route: 048
     Dates: start: 20241003, end: 20241203
  2. METOCLOPRAMIDE [Concomitant]
     Active Substance: METOCLOPRAMIDE
     Indication: Ill-defined disorder
     Route: 065
     Dates: start: 20250205, end: 20250212
  3. MIDAZOLAM [Concomitant]
     Active Substance: MIDAZOLAM
     Indication: Ill-defined disorder
     Route: 065
     Dates: start: 20250213, end: 20250214
  4. OXYCODONE [Concomitant]
     Active Substance: OXYCODONE
     Indication: Ill-defined disorder
     Route: 065
     Dates: start: 20250213
  5. WATER [Concomitant]
     Active Substance: WATER
     Indication: Ill-defined disorder
     Route: 065
     Dates: start: 20250205, end: 20250210
  6. BIOTENE ORALBALANCE [Concomitant]
     Indication: Ill-defined disorder
     Route: 065
     Dates: start: 20250206, end: 20250207
  7. ASPIRIN [Concomitant]
     Active Substance: ASPIRIN
     Indication: Ill-defined disorder
     Route: 065
     Dates: start: 20240924, end: 20241213
  8. BECLOMETHASONE DIPROPIONATE [Concomitant]
     Active Substance: BECLOMETHASONE DIPROPIONATE
     Indication: Ill-defined disorder
     Route: 065
     Dates: start: 20240924
  9. TEMAZEPAM [Concomitant]
     Active Substance: TEMAZEPAM
     Indication: Ill-defined disorder
     Route: 065
     Dates: start: 20240924, end: 20241220
  10. DILTIAZEM HYDROCHLORIDE [Concomitant]
     Active Substance: DILTIAZEM HYDROCHLORIDE
     Indication: Ill-defined disorder
     Route: 065
     Dates: start: 20240924, end: 20241220
  11. LOSARTAN [Concomitant]
     Active Substance: LOSARTAN
     Indication: Ill-defined disorder
     Dosage: 25 MILLIGRAM, DAILY
     Route: 065
     Dates: start: 20241003, end: 20241203
  12. POTASSIUM BICARBONATE\SODIUM ALGINATE [Concomitant]
     Active Substance: POTASSIUM BICARBONATE\SODIUM ALGINATE
     Indication: Ill-defined disorder
     Route: 065
     Dates: start: 20250123, end: 20250213
  13. ISOSORBIDE [Concomitant]
     Active Substance: ISOSORBIDE
     Indication: Ill-defined disorder
     Route: 065
     Dates: start: 20241129, end: 20241227
  14. OMEPRAZOLE [Concomitant]
     Active Substance: OMEPRAZOLE
     Indication: Ill-defined disorder
     Route: 048
     Dates: start: 20240924
  15. NITROGLYCERIN [Concomitant]
     Active Substance: NITROGLYCERIN
     Indication: Ill-defined disorder
     Route: 065
     Dates: start: 20241129, end: 20241227
  16. METHYLPREDNISOLONE ACETATE [Concomitant]
     Active Substance: METHYLPREDNISOLONE ACETATE
     Indication: Ill-defined disorder
     Route: 065
     Dates: start: 20241206, end: 20241207
  17. CLOTRIMAZOLE [Concomitant]
     Active Substance: CLOTRIMAZOLE
     Indication: Ill-defined disorder
     Route: 065
     Dates: start: 20250123, end: 20250128
  18. CHLORPHENIRAMINE MALEATE [Concomitant]
     Active Substance: CHLORPHENIRAMINE MALEATE
     Indication: Ill-defined disorder
     Route: 065
     Dates: start: 20250123, end: 20250128
  19. CYCLIZINE [Concomitant]
     Active Substance: CYCLIZINE
     Indication: Ill-defined disorder
     Route: 065
     Dates: start: 20250123, end: 20250128
  20. SODIUM CHLORIDE [Concomitant]
     Active Substance: SODIUM CHLORIDE
     Indication: Ill-defined disorder
     Route: 065
     Dates: start: 20250123, end: 20250128
  21. PLASMA-LYTE 148 [Concomitant]
     Active Substance: MAGNESIUM CHLORIDE\POTASSIUM CHLORIDE\SODIUM ACETATE\SODIUM CHLORIDE\SODIUM GLUCONATE
     Indication: Ill-defined disorder
     Route: 065
     Dates: start: 20250125, end: 20250125
  22. TINZAPARIN [Concomitant]
     Active Substance: TINZAPARIN
     Indication: Ill-defined disorder
     Route: 065
     Dates: start: 20250128, end: 20250128
  23. FUROSEMIDE [Concomitant]
     Active Substance: FUROSEMIDE
     Indication: Ill-defined disorder
     Route: 065
     Dates: start: 20250129
  24. BUTYLSCOPOLAMINE BROMIDE [Concomitant]
     Active Substance: BUTYLSCOPOLAMINE BROMIDE
     Indication: Ill-defined disorder
     Route: 065
     Dates: start: 20250213, end: 20250214
  25. AMITRIPTYLINE [Concomitant]
     Active Substance: AMITRIPTYLINE
     Indication: Product used for unknown indication
     Route: 065

REACTIONS (11)
  - Hepatitis [Fatal]
  - Hepatic cirrhosis [Unknown]
  - Hepatotoxicity [Unknown]
  - Acute kidney injury [Unknown]
  - Nausea [Unknown]
  - Decreased appetite [Unknown]
  - Dyspnoea [Unknown]
  - Dyspepsia [Unknown]
  - Abdominal distension [Unknown]
  - Carbohydrate antigen 125 increased [Unknown]
  - Condition aggravated [Unknown]

NARRATIVE: CASE EVENT DATE: 20241120
